FAERS Safety Report 7523320-0 (Version None)
Quarter: 2011Q2

REPORT INFORMATION
  Report Type: 
  Country: None (occurrence: None)
  Receive Date: 20110601
  Receipt Date: 20110601
  Transmission Date: 20111010
  Serious: No
  Sender: FDA-Public Use
  Company Number: None

PATIENT

DRUGS (3)
  1. ABILIFY [Suspect]
     Indication: SCHIZOPHRENIA
     Dates: start: 20000101, end: 20110526
  2. ABILIFY [Suspect]
     Indication: BIPOLAR DISORDER
     Dates: start: 20000101, end: 20110526
  3. ABILIFY [Suspect]
     Indication: BIPOLAR I DISORDER
     Dates: start: 20000101, end: 20110526

REACTIONS (3)
  - GASTROINTESTINAL DISORDER [None]
  - INCONTINENCE [None]
  - BLADDER DISORDER [None]
